FAERS Safety Report 20146994 (Version 2)
Quarter: 2021Q4

REPORT INFORMATION
  Report Type: Spontaneous
  Country: US (occurrence: US)
  Receive Date: 20211203
  Receipt Date: 20211207
  Transmission Date: 20220303
  Serious: No
  Sender: FDA-Public Use
  Company Number: US-SA-SAC20211123000456

PATIENT
  Age: 39 Year
  Sex: Male

DRUGS (1)
  1. CABLIVI [Suspect]
     Active Substance: CAPLACIZUMAB-YHDP
     Indication: Immune thrombocytopenia
     Dosage: 11 MG, QD
     Route: 058
     Dates: start: 20211109

REACTIONS (5)
  - Platelet count abnormal [Unknown]
  - Haemoptysis [Unknown]
  - Anxiety [Unknown]
  - Insomnia [Unknown]
  - Epistaxis [Unknown]

NARRATIVE: CASE EVENT DATE: 20211112
